FAERS Safety Report 4746750-9 (Version None)
Quarter: 2005Q3

REPORT INFORMATION
  Report Type: 
  Country: None (occurrence: None)
  Receive Date: 20050817
  Receipt Date: 20050804
  Transmission Date: 20060218
  Serious: Yes (Other)
  Sender: FDA-Public Use
  Company Number: PHBS2005JP11348

PATIENT

DRUGS (1)
  1. TEGRETOL [Suspect]
     Dosage: 400 MG/DAY

REACTIONS (1)
  - AMNESIA [None]
